FAERS Safety Report 7884481-7 (Version None)
Quarter: 2011Q4

REPORT INFORMATION
  Report Type: 
  Country: None (occurrence: None)
  Receive Date: 20111102
  Receipt Date: 20111004
  Transmission Date: 20120403
  Serious: Yes (Hospitalization)
  Sender: FDA-Public Use
  Company Number: US-ROCHE-1007823

PATIENT

DRUGS (4)
  1. CISPLATIN [Suspect]
     Indication: MALIGNANT URINARY TRACT NEOPLASM
     Route: 042
     Dates: start: 20100210
  2. AVASTIN [Suspect]
     Indication: MALIGNANT URINARY TRACT NEOPLASM
     Dosage: 15MG/KG LAST ADMINISTERED DOSE WAS ON 18/MAY/2011
     Route: 042
     Dates: start: 20100210
  3. GEMCITABINE HYDROCHLORIDE [Suspect]
     Indication: MALIGNANT URINARY TRACT NEOPLASM
     Route: 042
  4. AVASTIN [Suspect]
     Dosage: ON DAY 1
     Route: 042

REACTIONS (5)
  - OEDEMA PERIPHERAL [None]
  - RENAL FAILURE ACUTE [None]
  - THROMBOPHLEBITIS SUPERFICIAL [None]
  - PAIN [None]
  - DERMATITIS ACNEIFORM [None]
